FAERS Safety Report 17395095 (Version 2)
Quarter: 2021Q1

REPORT INFORMATION
  Report Type: Spontaneous
  Country: FI (occurrence: FI)
  Receive Date: 20200210
  Receipt Date: 20210327
  Transmission Date: 20210419
  Serious: Yes (Hospitalization)
  Sender: FDA-Public Use
  Company Number: FI-ACCORD-171765

PATIENT
  Age: 31 Year
  Sex: Male

DRUGS (19)
  1. PEGORION [Interacting]
     Active Substance: POLYETHYLENE GLYCOL 4000
     Indication: PRODUCT USED FOR UNKNOWN INDICATION
     Dosage: 24,G,DAILY,POWDER FOR ORAL SOLUTION IN SINGLE?DOSE CONTAINER
     Route: 048
     Dates: start: 20160419
  2. LEVOZIN [LEVOMEPROMAZINE] [Interacting]
     Active Substance: LEVOMEPROMAZINE
     Indication: PRODUCT USED FOR UNKNOWN INDICATION
     Route: 048
  3. RISPERDAL [Interacting]
     Active Substance: RISPERIDONE
     Indication: PRODUCT USED FOR UNKNOWN INDICATION
     Route: 048
  4. TENOX (TEMAZEPAM) [Interacting]
     Active Substance: TEMAZEPAM
     Indication: PRODUCT USED FOR UNKNOWN INDICATION
     Route: 048
     Dates: start: 20150606
  5. DEPRAKINE [Interacting]
     Active Substance: VALPROIC ACID
     Indication: EPILEPSY
     Dosage: 1.5,G,DAILY
     Route: 048
     Dates: start: 20150225
  6. LITO [Interacting]
     Active Substance: LITHIUM CARBONATE
     Indication: HOSTILITY
     Route: 065
  7. KETIPINOR [Interacting]
     Active Substance: QUETIAPINE FUMARATE
     Indication: PRODUCT USED FOR UNKNOWN INDICATION
     Dosage: 200,MG,DAILY
     Route: 048
     Dates: start: 20150917
  8. SERENASE [HALOPERIDOL] [Interacting]
     Active Substance: HALOPERIDOL
     Indication: PRODUCT USED FOR UNKNOWN INDICATION
     Route: 048
     Dates: start: 20150409
  9. NALTREXONE ACCORD [Suspect]
     Active Substance: NALTREXONE HYDROCHLORIDE
     Indication: PRODUCT USED FOR UNKNOWN INDICATION
     Route: 048
     Dates: start: 20160324
  10. VI?SIBLIN (PLANTAGO AFRA SEED\SODIUM CHLORIDE\THIAMINE) [Interacting]
     Active Substance: PLANTAGO AFRA SEED\SODIUM CHLORIDE\THIAMINE
     Indication: PRODUCT USED FOR UNKNOWN INDICATION
     Dosage: 2,DF,DAILY
     Route: 048
     Dates: start: 20150731
  11. DIAPAM (DIAZEPAM) [Interacting]
     Active Substance: DIAZEPAM
     Indication: PRODUCT USED FOR UNKNOWN INDICATION
     Route: 048
     Dates: start: 20150409
  12. LITO [Interacting]
     Active Substance: LITHIUM CARBONATE
     Indication: HOSTILITY
     Route: 048
     Dates: start: 20150225
  13. LAXOBERON [Interacting]
     Active Substance: SODIUM PICOSULFATE
     Indication: PRODUCT USED FOR UNKNOWN INDICATION
     Route: 048
     Dates: start: 20150622
  14. SERENASE [HALOPERIDOL] [Interacting]
     Active Substance: HALOPERIDOL
     Indication: PRODUCT USED FOR UNKNOWN INDICATION
     Route: 048
     Dates: start: 20160129
  15. FROIDIR [Interacting]
     Active Substance: CLOZAPINE
     Indication: PRODUCT USED FOR UNKNOWN INDICATION
     Dosage: 500,MG,DAILY
     Route: 048
     Dates: start: 20150225
  16. SUPRIUM [Interacting]
     Active Substance: SULPIRIDE
     Indication: PRODUCT USED FOR UNKNOWN INDICATION
     Route: 048
  17. TOILAX [Interacting]
     Active Substance: BISACODYL
     Indication: PRODUCT USED FOR UNKNOWN INDICATION
     Dosage: AS NECESSARY
     Route: 054
     Dates: start: 20160415
  18. SERENASE [HALOPERIDOL] [Interacting]
     Active Substance: HALOPERIDOL
     Indication: PRODUCT USED FOR UNKNOWN INDICATION
     Dosage: 6,MG,DAILY
     Route: 048
     Dates: start: 20150409
  19. DEPRAKINE [Interacting]
     Active Substance: VALPROIC ACID
     Indication: EPILEPSY
     Dosage: 1.5,G,DAILY
     Route: 048
     Dates: start: 20150225

REACTIONS (45)
  - Muscle contractions involuntary [Not Recovered/Not Resolved]
  - Dysarthria [Not Recovered/Not Resolved]
  - Constipation [Not Recovered/Not Resolved]
  - Posture abnormal [Not Recovered/Not Resolved]
  - Decreased appetite [Not Recovered/Not Resolved]
  - Dyskinesia [Not Recovered/Not Resolved]
  - Hyperhidrosis [Not Recovered/Not Resolved]
  - Substance abuse [Unknown]
  - Loss of control of legs [Not Recovered/Not Resolved]
  - Mutism [Not Recovered/Not Resolved]
  - Glassy eyes [Not Recovered/Not Resolved]
  - Cyanosis [Not Recovered/Not Resolved]
  - Hair disorder [Not Recovered/Not Resolved]
  - Peripheral coldness [Not Recovered/Not Resolved]
  - Epilepsy [Recovered/Resolved]
  - Paraesthesia [Not Recovered/Not Resolved]
  - Gastric dilatation [Not Recovered/Not Resolved]
  - Mouth breathing [Not Recovered/Not Resolved]
  - Head titubation [Not Recovered/Not Resolved]
  - Restlessness [Not Recovered/Not Resolved]
  - Nausea [Not Recovered/Not Resolved]
  - Depressed level of consciousness [Not Recovered/Not Resolved]
  - Drug interaction [Unknown]
  - Speech disorder [Not Recovered/Not Resolved]
  - Fall [Not Recovered/Not Resolved]
  - Loss of personal independence in daily activities [Unknown]
  - Dyspnoea [Not Recovered/Not Resolved]
  - Heart rate increased [Not Recovered/Not Resolved]
  - Hypotonia [Not Recovered/Not Resolved]
  - Somnolence [Not Recovered/Not Resolved]
  - Malaise [Not Recovered/Not Resolved]
  - Tremor [Not Recovered/Not Resolved]
  - Memory impairment [Not Recovered/Not Resolved]
  - Cognitive disorder [Not Recovered/Not Resolved]
  - Gait disturbance [Not Recovered/Not Resolved]
  - Toxicity to various agents [Unknown]
  - Drooling [Not Recovered/Not Resolved]
  - Hallucination, visual [Not Recovered/Not Resolved]
  - Diplopia [Not Recovered/Not Resolved]
  - Sudden onset of sleep [Not Recovered/Not Resolved]
  - Gynaecomastia [Not Recovered/Not Resolved]
  - Reduced facial expression [Not Recovered/Not Resolved]
  - Dizziness [Not Recovered/Not Resolved]
  - Deafness transitory [Not Recovered/Not Resolved]
  - Contusion [Not Recovered/Not Resolved]

NARRATIVE: CASE EVENT DATE: 201602
